FAERS Safety Report 22168328 (Version 1)
Quarter: 2023Q2

REPORT INFORMATION
  Report Type: Spontaneous
  Country: US (occurrence: US)
  Receive Date: 20230403
  Receipt Date: 20230403
  Transmission Date: 20230721
  Serious: No
  Sender: FDA-Public Use
  Company Number: US-BAYER-2023A033260

PATIENT
  Sex: Male

DRUGS (11)
  1. ALEVE [Suspect]
     Active Substance: NAPROXEN SODIUM
     Indication: Pain
     Dosage: 11 MG, QD
  2. XELJANZ XR [Concomitant]
     Active Substance: TOFACITINIB CITRATE
     Dosage: UNK
  3. IBUPROFEN [Concomitant]
     Active Substance: IBUPROFEN
  4. NAPROXEN SODIUM [Concomitant]
     Active Substance: NAPROXEN SODIUM
  5. MELOXICAM [Concomitant]
     Active Substance: MELOXICAM
  6. DICLOFENAC [Concomitant]
     Active Substance: DICLOFENAC
  7. METHOTREXATE [Concomitant]
     Active Substance: METHOTREXATE
  8. OTEZLA [Concomitant]
     Active Substance: APREMILAST
  9. LIVALO [Concomitant]
     Active Substance: PITAVASTATIN CALCIUM
  10. EZETIMIBE [Concomitant]
     Active Substance: EZETIMIBE
     Dosage: UNK
  11. REMICADE [Concomitant]
     Active Substance: INFLIXIMAB

REACTIONS (1)
  - Drug ineffective [Unknown]
